FAERS Safety Report 25021292 (Version 1)
Quarter: 2025Q1

REPORT INFORMATION
  Report Type: Spontaneous
  Country: US (occurrence: US)
  Receive Date: 20250228
  Receipt Date: 20250228
  Transmission Date: 20250408
  Serious: No
  Sender: ROCHE
  Company Number: US-ROCHE-10000215324

PATIENT
  Age: 78 Year
  Sex: Male

DRUGS (21)
  1. VABYSMO [Suspect]
     Active Substance: FARICIMAB-SVOA
     Indication: Neovascular age-related macular degeneration
     Route: 050
  2. NOVOLOG [Concomitant]
     Active Substance: INSULIN ASPART
     Indication: Type 1 diabetes mellitus
     Route: 058
     Dates: start: 1980
  3. ELIQUIS [Concomitant]
     Active Substance: APIXABAN
     Indication: Thrombosis
     Dosage: TAKES ONE TABLET TWICE DAILY
     Route: 048
     Dates: start: 2024
  4. LISINOPRIL [Concomitant]
     Active Substance: LISINOPRIL
     Indication: Hypertension
     Dosage: TAKES ONE TABLET TWICE A DAY
     Route: 048
     Dates: start: 2005
  5. SIMVASTATIN [Concomitant]
     Active Substance: SIMVASTATIN
     Indication: Blood cholesterol increased
     Dosage: TAKES AT NIGHT
     Route: 048
     Dates: start: 2005
  6. MEMANTINE [Concomitant]
     Active Substance: MEMANTINE
     Dosage: TAKES ONE TABLET TWICE A DAY
     Route: 048
     Dates: start: 202408
  7. DONEPEZIL [Concomitant]
     Active Substance: DONEPEZIL
     Dosage: TAKES AT BEDTIME
     Route: 048
     Dates: start: 2024
  8. AMLODIPINE [Concomitant]
     Active Substance: AMLODIPINE BESYLATE
     Indication: Hypertension
     Dosage: TAKES ONE TABLET TWICE DAILY
     Route: 048
  9. FUROSEMIDE [Concomitant]
     Active Substance: FUROSEMIDE
     Indication: Oedema peripheral
     Dosage: TAKES IN THE MORNING
     Route: 048
     Dates: start: 2024
  10. TAMSULOSIN [Concomitant]
     Active Substance: TAMSULOSIN
     Dosage: TAKES IN THE EVENING
     Route: 048
  11. KLONOPIN [Concomitant]
     Active Substance: CLONAZEPAM
     Dosage: TAKES ONE TABLET TWICE DAILY
     Route: 048
  12. TRAZODONE [Concomitant]
     Active Substance: TRAZODONE HYDROCHLORIDE
     Dosage: TAKES AT BEDTIME
     Route: 048
     Dates: start: 202408
  13. LATANOPROST [Concomitant]
     Active Substance: LATANOPROST
     Dosage: USES ONE DROP IN EACH EYE AT BEDTIME
     Route: 047
  14. ASPIRIN [Concomitant]
     Active Substance: ASPIRIN
     Indication: Thrombosis prophylaxis
     Dosage: TAKES ONE TABLET AT NIGHT
     Route: 048
  15. POTASSIUM CHLORIDE [Concomitant]
     Active Substance: POTASSIUM CHLORIDE
     Dosage: TAKES ONE TABLET TWICE DAILY
     Route: 048
     Dates: start: 202408
  16. PANTOPRAZOLE [Concomitant]
     Active Substance: PANTOPRAZOLE
     Dosage: TAKES ONE TABLET IN THE MORNING
     Route: 048
     Dates: start: 2015
  17. SERTRALINE [Concomitant]
     Active Substance: SERTRALINE HYDROCHLORIDE
     Indication: Depression
     Dosage: TAKES ONE TABLET IN THE MORNING
     Route: 048
     Dates: start: 202402
  18. NORCO [Concomitant]
     Active Substance: ACETAMINOPHEN\HYDROCODONE BITARTRATE
     Indication: Failed back surgery syndrome
     Route: 048
     Dates: start: 2005
  19. PROMETHAZINE [Concomitant]
     Active Substance: PROMETHAZINE HYDROCHLORIDE
     Route: 048
  20. HYDROXYZINE [Concomitant]
     Active Substance: HYDROXYZINE HYDROCHLORIDE
     Route: 048
  21. MINERALS\VITAMINS [Concomitant]
     Active Substance: MINERALS\VITAMINS
     Indication: Age-related macular degeneration
     Dosage: TAKES ONE TABLET TWICE DAILY
     Route: 048

REACTIONS (2)
  - Blood glucose increased [Not Recovered/Not Resolved]
  - Drug ineffective [Unknown]

NARRATIVE: CASE EVENT DATE: 20250220
